FAERS Safety Report 16242411 (Version 1)
Quarter: 2019Q2

REPORT INFORMATION
  Report Type: Spontaneous
  Country: GB (occurrence: GB)
  Receive Date: 20190426
  Receipt Date: 20190426
  Transmission Date: 20190711
  Serious: Yes (Other)
  Sender: FDA-Public Use
  Company Number: GB-ACCORD-124120

PATIENT
  Age: 8 Decade
  Sex: Male

DRUGS (4)
  1. CICLOSPORIN [Suspect]
     Active Substance: CYCLOSPORINE
     Indication: IMMUNOSUPPRESSANT DRUG THERAPY
     Dosage: 150 MILLIGRAM DAILY;
     Route: 065
     Dates: start: 2013
  2. SIROLIMUS. [Interacting]
     Active Substance: SIROLIMUS
     Indication: SKIN CANCER
     Dosage: 2 MG EVERY MORNING
     Route: 065
     Dates: start: 201502
  3. MYCOPHENOLIC ACID. [Suspect]
     Active Substance: MYCOPHENOLIC ACID
     Indication: IMMUNOSUPPRESSANT DRUG THERAPY
     Dosage: 1000 MILLIGRAM DAILY
     Route: 065
  4. ACITRETIN. [Interacting]
     Active Substance: ACITRETIN
     Indication: SKIN CANCER
     Route: 065
     Dates: start: 2013, end: 201502

REACTIONS (4)
  - Squamous cell carcinoma of skin [Recovered/Resolved]
  - Drug interaction [Unknown]
  - Skin erosion [Unknown]
  - Impaired healing [Recovering/Resolving]

NARRATIVE: CASE EVENT DATE: 2013
